FAERS Safety Report 5076319-0 (Version None)
Quarter: 2006Q3

REPORT INFORMATION
  Report Type: 
  Country: None (occurrence: None)
  Receive Date: 20060807
  Receipt Date: 20060728
  Transmission Date: 20061208
  Serious: Yes (Other)
  Sender: FDA-Public Use
  Company Number: NL200512000710

PATIENT
  Age: 9 Year
  Sex: Male

DRUGS (2)
  1. STRATTERA [Suspect]
     Indication: ATTENTION DEFICIT/HYPERACTIVITY DISORDER
     Dosage: 36 MG, ORAL
     Route: 048
     Dates: start: 20051018
  2. EPA (OMEGA-3 TRIGLYCERIDES) CAPSULE [Concomitant]

REACTIONS (2)
  - GALLBLADDER CANCER [None]
  - HEPATIC NEOPLASM MALIGNANT [None]
